FAERS Safety Report 5140676-7 (Version None)
Quarter: 2006Q4

REPORT INFORMATION
  Report Type: 
  Country: None (occurrence: None)
  Receive Date: 20061025
  Receipt Date: 20061011
  Transmission Date: 20070319
  Serious: Yes (Hospitalization)
  Sender: FDA-Public Use
  Company Number: 8018315

PATIENT
  Age: 17 Year
  Sex: Male

DRUGS (6)
  1. KEPPRA [Suspect]
     Indication: EPILEPSY
     Dosage: 2 DF 1/D PO
     Route: 048
     Dates: start: 20051130
  2. KEPPRA [Suspect]
     Indication: EPILEPSY
     Dosage: 0.5 DF 2/D PO
     Route: 048
  3. KEPPRA [Suspect]
     Indication: EPILEPSY
     Dosage: 1 DF 1/D PO
     Route: 048
     Dates: end: 20060715
  4. EPITOMAX [Concomitant]
  5. TEGRETOL [Concomitant]
  6. TRILEPTAL [Concomitant]

REACTIONS (9)
  - ANXIETY [None]
  - ASTHENIA [None]
  - COMPLEX PARTIAL SEIZURES [None]
  - COUGH [None]
  - DEHYDRATION [None]
  - DYSPNOEA [None]
  - FATIGUE [None]
  - RESPIRATORY DISORDER [None]
  - RHONCHI [None]
